FAERS Safety Report 8408721-0 (Version None)
Quarter: 2012Q2

REPORT INFORMATION
  Report Type: 
  Country: None (occurrence: None)
  Receive Date: 20120604
  Receipt Date: 20120521
  Transmission Date: 20120825
  Serious: Yes (Hospitalization, Other)
  Sender: FDA-Public Use
  Company Number: DE-FRI-1000030831

PATIENT
  Sex: Female
  Weight: 68 kg

DRUGS (8)
  1. AMILORIDE HYDROCHLORIDE [Concomitant]
  2. BISOPROLOL FUMARATE [Concomitant]
     Dosage: 5 MG
  3. AMITRIPTYLINE HCL [Concomitant]
  4. MEMANTINE HCL [Suspect]
     Indication: DEMENTIA ALZHEIMER'S TYPE
     Dosage: 5 MG
     Route: 048
     Dates: start: 20120327, end: 20120419
  5. PANTOPRAZOLE [Concomitant]
  6. TENSOFLUX [Concomitant]
  7. SIMVASTATIN [Concomitant]
     Dosage: 40 MG
  8. DYTIDE [Concomitant]

REACTIONS (3)
  - TRANSIENT ISCHAEMIC ATTACK [None]
  - APHASIA [None]
  - FACIAL PARESIS [None]
